FAERS Safety Report 26149171 (Version 1)
Quarter: 2025Q4

REPORT INFORMATION
  Report Type: Spontaneous
  Country: EU (occurrence: EU)
  Receive Date: 20251212
  Receipt Date: 20251212
  Transmission Date: 20260119
  Serious: Yes (Life-Threatening, Hospitalization, Other)
  Sender: BRISTOL-MYERS SQUIBB COMPANY
  Company Number: None

PATIENT
  Age: 88 Year
  Sex: Female

DRUGS (10)
  1. ELIQUIS [Suspect]
     Active Substance: APIXABAN
     Indication: Atrial fibrillation
     Route: 048
  2. Amitriptylin / Sarotex [Concomitant]
     Indication: Product used for unknown indication
     Dosage: EVENING
  3. Enalapril / Enalapril Krka [Concomitant]
     Indication: Product used for unknown indication
     Route: 048
  4. Furosemid / Furosemid [Concomitant]
     Indication: Product used for unknown indication
     Route: 048
  5. SYNALAR [Concomitant]
     Active Substance: FLUOCINOLONE ACETONIDE
     Indication: Product used for unknown indication
  6. Urea / Canoderm [Concomitant]
     Indication: Product used for unknown indication
  7. Hydrocortisone, Miconazole / Dactacort [Concomitant]
     Indication: Product used for unknown indication
  8. Paracetamol / Panodil [Concomitant]
     Indication: Product used for unknown indication
  9. Clobetasol / Dermovat [Concomitant]
     Indication: Product used for unknown indication
  10. Diclofenac / Voltarol Forte [Concomitant]
     Indication: Product used for unknown indication

REACTIONS (4)
  - Blood loss anaemia [Recovering/Resolving]
  - Traumatic shock [Recovering/Resolving]
  - Post procedural haemorrhage [Recovering/Resolving]
  - Acute respiratory failure [Recovering/Resolving]

NARRATIVE: CASE EVENT DATE: 20251119
